FAERS Safety Report 24883291 (Version 1)
Quarter: 2025Q1

REPORT INFORMATION
  Report Type: Spontaneous
  Country: US (occurrence: US)
  Receive Date: 20250124
  Receipt Date: 20250124
  Transmission Date: 20250409
  Serious: Yes (Other)
  Sender: RANBAXY
  Company Number: US-SUN PHARMACEUTICAL INDUSTRIES LTD-2025R1-490187

PATIENT
  Age: 30 Year
  Sex: Male

DRUGS (7)
  1. AZITHROMYCIN [Suspect]
     Active Substance: AZITHROMYCIN
     Indication: Gastrointestinal disorder
     Route: 065
  2. CLARITHROMYCIN [Suspect]
     Active Substance: CLARITHROMYCIN
     Indication: Gastrointestinal disorder
     Route: 065
  3. METRONIDAZOLE [Suspect]
     Active Substance: METRONIDAZOLE
     Indication: Gastrointestinal disorder
     Route: 065
  4. MOXIFLOXACIN [Suspect]
     Active Substance: MOXIFLOXACIN
     Indication: Gastrointestinal disorder
     Route: 065
  5. ORNIDAZOLE [Suspect]
     Active Substance: ORNIDAZOLE
     Indication: Gastrointestinal disorder
     Route: 065
  6. PRAZIQUANTEL [Suspect]
     Active Substance: PRAZIQUANTEL
     Indication: Gastrointestinal disorder
     Route: 065
  7. ARTESUNATE [Suspect]
     Active Substance: ARTESUNATE
     Indication: Gastrointestinal disorder
     Route: 065

REACTIONS (2)
  - Therapy partial responder [Unknown]
  - Disease recurrence [Unknown]
